FAERS Safety Report 6637686-7 (Version None)
Quarter: 2010Q1

REPORT INFORMATION
  Report Type: 
  Country: None (occurrence: None)
  Receive Date: 20100317
  Receipt Date: 20100304
  Transmission Date: 20100710
  Serious: Yes (Hospitalization)
  Sender: FDA-Public Use
  Company Number: US-ELI_LILLY_AND_COMPANY-US201003002437

PATIENT
  Age: 67 Year
  Sex: Male

DRUGS (3)
  1. CYMBALTA [Suspect]
     Indication: MAJOR DEPRESSION
     Dosage: 60 MG, UNK
     Dates: start: 20070801, end: 20100301
  2. METFORMIN HYDROCHLORIDE [Concomitant]
     Dosage: UNK, UNKNOWN
  3. LISINOPRIL [Concomitant]
     Dosage: UNK, UNKNOWN

REACTIONS (1)
  - PANCREATITIS [None]
